FAERS Safety Report 16423244 (Version 1)
Quarter: 2019Q2

REPORT INFORMATION
  Report Type: Spontaneous
  Country: US (occurrence: US)
  Receive Date: 20190612
  Receipt Date: 20190612
  Transmission Date: 20190711
  Serious: Yes (Hospitalization, Other)
  Sender: FDA-Public Use
  Company Number: US-ALLERGAN-1924291US

PATIENT
  Sex: Female

DRUGS (10)
  1. HUMIRA [Suspect]
     Active Substance: ADALIMUMAB
     Indication: RHEUMATOID ARTHRITIS
     Dosage: 40 MG, Q2WEEKS
     Route: 058
     Dates: start: 2018, end: 2018
  2. INFLUENZA VACCINE [Suspect]
     Active Substance: INFLUENZA VIRUS VACCINE
     Indication: PRODUCT USED FOR UNKNOWN INDICATION
     Dosage: UNK
     Route: 065
     Dates: start: 20181015
  3. LORAZEPAM. [Concomitant]
     Active Substance: LORAZEPAM
     Indication: ANXIETY
  4. PROPRANOLOL [Concomitant]
     Active Substance: PROPRANOLOL HYDROCHLORIDE
     Indication: HEART RATE INCREASED
  5. TOPIRAMAT [Concomitant]
     Active Substance: TOPIRAMATE
     Indication: MIGRAINE
  6. HUMIRA [Suspect]
     Active Substance: ADALIMUMAB
     Dosage: 40 MG, Q2WEEKS
     Route: 058
     Dates: start: 201702, end: 2018
  7. RESTASIS [Suspect]
     Active Substance: CYCLOSPORINE
     Indication: DRY EYE
     Dosage: UNK
     Route: 047
  8. BENICAR [Concomitant]
     Active Substance: OLMESARTAN MEDOXOMIL
     Indication: HYPERTENSION
  9. SIMVASTATIN. [Concomitant]
     Active Substance: SIMVASTATIN
     Indication: BLOOD CHOLESTEROL INCREASED
  10. NORVASC [Concomitant]
     Active Substance: AMLODIPINE BESYLATE
     Indication: HYPERTENSION

REACTIONS (24)
  - Mobility decreased [Not Recovered/Not Resolved]
  - Fibula fracture [Unknown]
  - Contusion [Unknown]
  - Osteoarthritis [Unknown]
  - Rheumatoid arthritis [Unknown]
  - Balance disorder [Unknown]
  - Dermatitis contact [Unknown]
  - Intervertebral disc protrusion [Unknown]
  - Spondylitis [Unknown]
  - Rheumatoid nodule [Unknown]
  - Nasopharyngitis [Not Recovered/Not Resolved]
  - Ankle fracture [Recovering/Resolving]
  - Cataract [Unknown]
  - Tremor [Unknown]
  - Joint stiffness [Unknown]
  - Dysstasia [Unknown]
  - Nodule [Unknown]
  - Hypotension [Unknown]
  - Eye inflammation [Unknown]
  - Foot fracture [Unknown]
  - Increased upper airway secretion [Not Recovered/Not Resolved]
  - Fall [Recovered/Resolved]
  - Hypersensitivity [Unknown]
  - Influenza [Unknown]

NARRATIVE: CASE EVENT DATE: 2018
